FAERS Safety Report 9399620 (Version 1)
Quarter: 2013Q3

REPORT INFORMATION
  Report Type: Spontaneous
  Country: US (occurrence: None)
  Receive Date: 20130710
  Receipt Date: 20130710
  Transmission Date: 20140515
  Serious: Yes (Other)
  Sender: FDA-Public Use
  Company Number: 2013P1010811

PATIENT
  Age: 56 Year
  Sex: Male

DRUGS (2)
  1. ISOTRETINOIN [Suspect]
     Indication: DERMATITIS ACNEIFORM
     Route: 048
  2. ISOTRETINOIN [Suspect]
     Indication: PAIN
     Route: 048

REACTIONS (5)
  - Dry skin [None]
  - Dry eye [None]
  - Chapped lips [None]
  - Lacrimation increased [None]
  - Conjunctivitis [None]
